FAERS Safety Report 21694455 (Version 4)
Quarter: 2023Q4

REPORT INFORMATION
  Report Type: Spontaneous
  Country: JP (occurrence: JP)
  Receive Date: 20221207
  Receipt Date: 20231114
  Transmission Date: 20240110
  Serious: Yes (Hospitalization, Other)
  Sender: FDA-Public Use
  Company Number: JP-OTSUKA-2022_053835

PATIENT
  Age: 53 Year
  Sex: Female

DRUGS (2)
  1. SAMSCA [Suspect]
     Active Substance: TOLVAPTAN
     Indication: Congenital cystic kidney disease
     Dosage: 45 MG/DAY
     Route: 048
     Dates: start: 20220315, end: 20220802
  2. SAMSCA [Suspect]
     Active Substance: TOLVAPTAN
     Dosage: 15 MG/DAY
     Route: 048
     Dates: start: 20220314, end: 20220314

REACTIONS (4)
  - Autoimmune hepatitis [Recovering/Resolving]
  - Hepatitis acute [Recovered/Resolved]
  - Stress cardiomyopathy [Recovered/Resolved]
  - Underdose [Unknown]

NARRATIVE: CASE EVENT DATE: 20220314
